FAERS Safety Report 21921368 (Version 1)
Quarter: 2023Q1

REPORT INFORMATION
  Report Type: Spontaneous
  Country: US (occurrence: US)
  Receive Date: 20230127
  Receipt Date: 20230127
  Transmission Date: 20230417
  Serious: No
  Sender: FDA-Public Use
  Company Number: US-GE HEALTHCARE-2022CSU008832

PATIENT
  Age: 15 Year
  Sex: Female
  Weight: 55.329 kg

DRUGS (7)
  1. OMNIPAQUE [Suspect]
     Active Substance: IOHEXOL
     Indication: Computerised tomogram abdomen
     Dosage: 100 MG, SINGLE
     Route: 042
     Dates: start: 20221202, end: 20221202
  2. OMNIPAQUE [Suspect]
     Active Substance: IOHEXOL
     Indication: Abdominal pain lower
  3. OMNIPAQUE [Suspect]
     Active Substance: IOHEXOL
     Indication: Vomiting
  4. DIPHENHYDRAMINE [Concomitant]
     Active Substance: DIPHENHYDRAMINE
     Indication: Hypersensitivity
     Dosage: 50 MG
     Route: 042
     Dates: start: 20221202, end: 20221202
  5. FAMOTIDINE [Concomitant]
     Active Substance: FAMOTIDINE
     Indication: Hypersensitivity
     Dosage: 20 MG
     Route: 042
     Dates: start: 20221202, end: 20221202
  6. METHYLPREDNISOLONE [Concomitant]
     Active Substance: METHYLPREDNISOLONE
     Indication: Hypersensitivity
     Dosage: 125 MG
     Route: 042
     Dates: start: 20221202, end: 20221202
  7. SODIUM CHLORIDE [Concomitant]
     Active Substance: SODIUM CHLORIDE
     Indication: Hypersensitivity
     Dosage: 1000 ML
     Route: 042
     Dates: start: 20221202, end: 20221202

REACTIONS (1)
  - Hypersensitivity [Recovered/Resolved]

NARRATIVE: CASE EVENT DATE: 20221202
